FAERS Safety Report 6249212-5 (Version None)
Quarter: 2009Q2

REPORT INFORMATION
  Report Type: 
  Country: None (occurrence: None)
  Receive Date: 20090624
  Receipt Date: 20090624
  Transmission Date: 20091009
  Serious: No
  Sender: FDA-Public Use
  Company Number: None

PATIENT
  Sex: Female
  Weight: 77.1115 kg

DRUGS (1)
  1. ANGELIQ [Suspect]
     Indication: MENOPAUSE
     Dosage: .5/1.0 DAILY PO
     Route: 048
     Dates: start: 20090415, end: 20090615

REACTIONS (9)
  - BURNING SENSATION [None]
  - CHAPPED LIPS [None]
  - CHEILITIS [None]
  - DRUG EFFECT DECREASED [None]
  - HERPES SIMPLEX [None]
  - HYPERSENSITIVITY [None]
  - LIP EXFOLIATION [None]
  - LIP OEDEMA [None]
  - ORAL HERPES [None]
